FAERS Safety Report 4313308-5 (Version None)
Quarter: 2004Q1

REPORT INFORMATION
  Report Type: 
  Country: None (occurrence: None)
  Receive Date: 20040304
  Receipt Date: 20040226
  Transmission Date: 20041129
  Serious: Yes (Hospitalization)
  Sender: FDA-Public Use
  Company Number: FR-JNJFOC-20040300001

PATIENT
  Age: 52 Year
  Sex: Female

DRUGS (1)
  1. TRAMADOL HCL [Suspect]
     Indication: ARTHRALGIA
     Dosage: 150 MG, 2 IN 1 DAY, ORAL
     Route: 048
     Dates: start: 20031117, end: 20031209

REACTIONS (3)
  - CYTOLYTIC HEPATITIS [None]
  - RASH ERYTHEMATOUS [None]
  - RASH PRURITIC [None]
